FAERS Safety Report 17274591 (Version 2)
Quarter: 2020Q1

REPORT INFORMATION
  Report Type: Report from Study
  Country: PH (occurrence: PH)
  Receive Date: 20200115
  Receipt Date: 20200129
  Transmission Date: 20200409
  Serious: Yes (Death, Hospitalization)
  Sender: FDA-Public Use
  Company Number: PH-TAKEDA-2019TUS040689

PATIENT
  Sex: Male

DRUGS (1)
  1. VEDOLIZUMAB [Suspect]
     Active Substance: VEDOLIZUMAB
     Indication: CROHN^S DISEASE
     Dosage: 300 MILLIGRAM
     Route: 042
     Dates: start: 20190111

REACTIONS (6)
  - Diarrhoea [Unknown]
  - Myalgia [Unknown]
  - Death [Fatal]
  - Vomiting [Unknown]
  - Abdominal pain upper [Unknown]
  - Arthralgia [Unknown]
